FAERS Safety Report 15361643 (Version 1)
Quarter: 2018Q3

REPORT INFORMATION
  Report Type: Spontaneous
  Country: US (occurrence: US)
  Receive Date: 20180831
  Receipt Date: 20180831
  Transmission Date: 20181010
  Serious: Yes (Life-Threatening, Other)
  Sender: FDA-Public Use
  Company Number: None

PATIENT
  Age: 56 Year
  Sex: Male
  Weight: 90 kg

DRUGS (14)
  1. AMINOMAX [Concomitant]
  2. SUMA [Concomitant]
  3. LICORICE. [Concomitant]
     Active Substance: LICORICE
  4. SINGULAIR [Suspect]
     Active Substance: MONTELUKAST SODIUM
     Indication: SEASONAL ALLERGY
     Dosage: ?          QUANTITY:3 CAPSULE(S);?
     Route: 048
     Dates: end: 20180701
  5. NEUROOPTIMIZER [Concomitant]
  6. PRO?BIOTICS [Concomitant]
  7. RAGWEED TINCTURE [Concomitant]
  8. MSM [Concomitant]
     Active Substance: DIMETHYL SULFONE
  9. MULTI [Concomitant]
  10. VITAMIN B COMPLEX [Concomitant]
     Active Substance: CYANOCOBALAMIN\DEXPANTHENOL\NIACINAMIDE\PYRIDOXINE HYDROCHLORIDE\RIBOFLAVIN 5^-PHOSPHATE SODIUM\THIAMINE HYDROCHLORIDE\VITAMIN B COMPLEX
  11. ALFALFA [Concomitant]
     Active Substance: ALFALFA
  12. TMG [Concomitant]
  13. VITAMIN C [Concomitant]
     Active Substance: ASCORBIC ACID
  14. KICK?ASS ALLERGY TINCTURE [Concomitant]

REACTIONS (21)
  - Confusional state [None]
  - Insomnia [None]
  - Agitation [None]
  - Withdrawal syndrome [None]
  - Hypoaesthesia [None]
  - Toothache [None]
  - Loss of consciousness [None]
  - Screaming [None]
  - Hallucination, visual [None]
  - Bradyphrenia [None]
  - Anger [None]
  - Anxiety [None]
  - Neurotransmitter level altered [None]
  - Aggression [None]
  - Gait disturbance [None]
  - Crying [None]
  - Disorientation [None]
  - Impaired work ability [None]
  - Impaired driving ability [None]
  - Nightmare [None]
  - Suicidal ideation [None]

NARRATIVE: CASE EVENT DATE: 20180701
